FAERS Safety Report 16527420 (Version 1)
Quarter: 2019Q3

REPORT INFORMATION
  Report Type: Report from Study
  Country: CA (occurrence: CA)
  Receive Date: 20190704
  Receipt Date: 20190704
  Transmission Date: 20191004
  Serious: Yes (Hospitalization, Other)
  Sender: FDA-Public Use
  Company Number: CA-ASTRAZENECA-2019SE65481

PATIENT
  Age: 23853 Day
  Sex: Female
  Weight: 60.9 kg

DRUGS (2)
  1. CARBOPLATIN + TAXOL [Concomitant]
     Dates: start: 20181204, end: 20190109
  2. IMFINZI [Suspect]
     Active Substance: DURVALUMAB
     Indication: LUNG CARCINOMA CELL TYPE UNSPECIFIED STAGE III
     Dosage: 10 MG/KG
     Route: 042
     Dates: start: 20190220, end: 20190305

REACTIONS (2)
  - Pulmonary toxicity [Recovered/Resolved with Sequelae]
  - Radiation pneumonitis [Recovering/Resolving]

NARRATIVE: CASE EVENT DATE: 20190305
